FAERS Safety Report 15712715 (Version 1)
Quarter: 2018Q4

REPORT INFORMATION
  Report Type: Spontaneous
  Country: JP (occurrence: JP)
  Receive Date: 20181212
  Receipt Date: 20181212
  Transmission Date: 20190205
  Serious: Yes (Death, Other)
  Sender: FDA-Public Use
  Company Number: JP-AMGEN-JPNSP2018176948

PATIENT
  Age: 72 Year
  Sex: Male
  Weight: 52 kg

DRUGS (7)
  1. BLOPRESS [Concomitant]
     Active Substance: CANDESARTAN CILEXETIL
     Dosage: 40 MG, QD
     Route: 048
     Dates: start: 20120629
  2. NEXIUM [Concomitant]
     Active Substance: ESOMEPRAZOLE MAGNESIUM
     Dosage: 20 MG, QD
     Route: 048
     Dates: start: 20131008
  3. DENOTAS [Concomitant]
     Active Substance: CALCIUM CARBONATE\CHOLECALCIFEROL\MAGNESIUM CARBONATE
     Dosage: 2 DF, QD
     Route: 048
     Dates: start: 20131216
  4. RANMARK [Suspect]
     Active Substance: DENOSUMAB
     Indication: METASTASES TO BONE
     Dosage: 1 DF, UNK
     Route: 058
     Dates: start: 20120806, end: 20140609
  5. SELBEX [Concomitant]
     Active Substance: TEPRENONE
     Dosage: 50 MG, TID
     Route: 048
     Dates: start: 20120625
  6. MEDICON [Concomitant]
     Active Substance: DEXTROMETHORPHAN HYDROBROMIDE
     Dosage: 15 MG, TID
     Route: 048
     Dates: start: 20130527
  7. NORVASC [Concomitant]
     Active Substance: AMLODIPINE BESYLATE
     Dosage: 5 MG, QD
     Route: 048
     Dates: start: 20120924

REACTIONS (2)
  - Death [Fatal]
  - Osteonecrosis of jaw [Unknown]

NARRATIVE: CASE EVENT DATE: 20131216
